FAERS Safety Report 9714222 (Version 2)
Quarter: 2015Q3

REPORT INFORMATION
  Report Type: Spontaneous
  Country: US (occurrence: US)
  Receive Date: 20131126
  Receipt Date: 20150803
  Transmission Date: 20151125
  Serious: No
  Sender: FDA-Public Use
  Company Number: US-GILEAD-2008-0019465

PATIENT
  Age: 70 Year
  Sex: Male
  Weight: 72.57 kg

DRUGS (8)
  1. TYLENOL [Concomitant]
     Active Substance: ACETAMINOPHEN
  2. COUMADIN [Concomitant]
     Active Substance: WARFARIN SODIUM
  3. LANOXIN [Concomitant]
     Active Substance: DIGOXIN
  4. LETAIRIS [Suspect]
     Active Substance: AMBRISENTAN
     Indication: PULMONARY ARTERIAL HYPERTENSION
     Route: 048
     Dates: start: 20081106
  5. LASIX [Concomitant]
     Active Substance: FUROSEMIDE
  6. REVATIO [Concomitant]
     Active Substance: SILDENAFIL CITRATE
  7. SYNTHROID [Concomitant]
     Active Substance: LEVOTHYROXINE SODIUM
  8. PROCARDIA XT [Concomitant]

REACTIONS (2)
  - Musculoskeletal pain [None]
  - Oedema peripheral [None]
